FAERS Safety Report 9655829 (Version 2)
Quarter: 2013Q4

REPORT INFORMATION
  Report Type: Spontaneous
  Country: US (occurrence: US)
  Receive Date: 20131030
  Receipt Date: 20131127
  Transmission Date: 20140711
  Serious: No
  Sender: FDA-Public Use
  Company Number: US-B.I. PHARMACEUTICALS,INC./RIDGEFIELD-2013-BI-33277BP

PATIENT
  Age: 65 Year
  Sex: Female

DRUGS (1)
  1. ATROVENT INHALATION SOLUTION [Suspect]
     Dosage: 136 MCG
     Route: 055

REACTIONS (2)
  - Dyspnoea [Unknown]
  - Product quality issue [Recovered/Resolved]
